FAERS Safety Report 17184781 (Version 1)
Quarter: 2019Q4

REPORT INFORMATION
  Report Type: Spontaneous
  Country: US (occurrence: US)
  Receive Date: 20191127
  Receipt Date: 20191127
  Transmission Date: 20200122
  Serious: No
  Sender: FDA-Public Use
  Company Number: None

PATIENT
  Age: 61 Year
  Sex: Female

DRUGS (10)
  1. CARBAMAZEPINE. [Concomitant]
     Active Substance: CARBAMAZEPINE
  2. LISINOPRIL. [Concomitant]
     Active Substance: LISINOPRIL
  3. OYSTER SHELL [Concomitant]
     Active Substance: OSTREA EDULIS SHELL
  4. ATORVASTATIN [Concomitant]
     Active Substance: ATORVASTATIN
  5. ASPIRIN. [Concomitant]
     Active Substance: ASPIRIN
  6. IBRANCE [Suspect]
     Active Substance: PALBOCICLIB
     Indication: NEOPLASM MALIGNANT
     Route: 048
     Dates: start: 20180116
  7. METOPROLOL. [Concomitant]
     Active Substance: METOPROLOL
  8. POT CHLORIDE [Concomitant]
     Active Substance: POTASSIUM CHLORIDE
  9. FUROSEMIDE. [Concomitant]
     Active Substance: FUROSEMIDE
  10. WARFARIN [Concomitant]
     Active Substance: WARFARIN

REACTIONS (4)
  - Alopecia [None]
  - Epistaxis [None]
  - Memory impairment [None]
  - Disorientation [None]
